FAERS Safety Report 9861651 (Version 1)
Quarter: 2014Q1

REPORT INFORMATION
  Report Type: Other
  Country: GB (occurrence: GB)
  Receive Date: 20140203
  Receipt Date: 20140203
  Transmission Date: 20141002
  Serious: Yes (Other)
  Sender: FDA-Public Use
  Company Number: GB-BRISTOL-MYERS SQUIBB COMPANY-20109575

PATIENT
  Age: 54 Year
  Sex: Female

DRUGS (8)
  1. METFORMIN HCL [Suspect]
  2. LEVOTHYROXINE [Suspect]
  3. PERINDOPRIL [Suspect]
  4. CLOMIPRAMINE [Suspect]
  5. ATENOLOL [Suspect]
  6. ASPIRIN [Suspect]
  7. ESTRADIOL [Suspect]
  8. ORLISTAT [Suspect]
     Dates: start: 200508, end: 200604

REACTIONS (1)
  - Renal impairment [Not Recovered/Not Resolved]
